FAERS Safety Report 17101083 (Version 1)
Quarter: 2019Q4

REPORT INFORMATION
  Report Type: Spontaneous
  Country: US (occurrence: US)
  Receive Date: 20191202
  Receipt Date: 20191202
  Transmission Date: 20200122
  Serious: No
  Sender: FDA-Public Use
  Company Number: US-SA-2019SA329207

PATIENT
  Age: 93 Year
  Sex: Male

DRUGS (1)
  1. LANTUS SOLOSTAR [Suspect]
     Active Substance: INSULIN GLARGINE
     Indication: TYPE 2 DIABETES MELLITUS
     Dosage: 22 U QAM + 16 Q PM
     Route: 065

REACTIONS (4)
  - Inappropriate schedule of product administration [Unknown]
  - Extra dose administered [Unknown]
  - Oxygen therapy [Unknown]
  - Wrong technique in device usage process [Unknown]
